FAERS Safety Report 4617754-1 (Version None)
Quarter: 2005Q1

REPORT INFORMATION
  Report Type: 
  Country: None (occurrence: None)
  Receive Date: 20050324
  Receipt Date: 20050314
  Transmission Date: 20050727
  Serious: Yes (Life-Threatening, Hospitalization)
  Sender: FDA-Public Use
  Company Number: JP-BRISTOL-MYERS SQUIBB COMPANY-12905881

PATIENT
  Age: 83 Year
  Sex: Male

DRUGS (12)
  1. GATIFLO TABS 100 MG [Suspect]
     Indication: PNEUMONIA
     Route: 048
     Dates: start: 20050224, end: 20050227
  2. GATIFLO TABS 100 MG [Suspect]
     Indication: CHRONIC OBSTRUCTIVE PULMONARY DISEASE
     Route: 048
     Dates: start: 20050224, end: 20050227
  3. SYLLABLE [Concomitant]
     Route: 048
  4. THEOPHYLLINE [Concomitant]
     Route: 048
  5. BISOLVON [Concomitant]
  6. MINIPRESS [Concomitant]
     Route: 048
  7. DEPAS [Concomitant]
     Route: 048
  8. RYTHMODAN [Concomitant]
     Route: 048
  9. ROCEPHIN [Concomitant]
  10. MEROPEN [Concomitant]
  11. MODACIN [Concomitant]
  12. DALACIN [Concomitant]

REACTIONS (2)
  - HYPOGLYCAEMIA [None]
  - LOSS OF CONSCIOUSNESS [None]
